FAERS Safety Report 21396954 (Version 2)
Quarter: 2022Q4

REPORT INFORMATION
  Report Type: Spontaneous
  Country: CN (occurrence: CN)
  Receive Date: 20220930
  Receipt Date: 20221011
  Transmission Date: 20230113
  Serious: Yes (Other)
  Sender: FDA-Public Use
  Company Number: CN-BAYER-2022A134078

PATIENT
  Age: 46 Year
  Sex: Male

DRUGS (6)
  1. STIVARGA [Suspect]
     Active Substance: REGORAFENIB
     Indication: Rectal adenocarcinoma
     Dosage: 80 MG, QD
     Route: 048
     Dates: start: 20210112
  2. STIVARGA [Suspect]
     Active Substance: REGORAFENIB
     Indication: Rectal adenocarcinoma
     Dosage: 80 MG, QD
     Route: 048
     Dates: start: 20220514
  3. TEGAFUR [Concomitant]
     Active Substance: TEGAFUR
     Dosage: UNK
     Dates: start: 20210112
  4. IRINOTECAN HYDROCHLORIDE [Concomitant]
     Active Substance: IRINOTECAN HYDROCHLORIDE
     Dosage: UNK
     Dates: start: 20220315, end: 20220422
  5. ERBITUX [Concomitant]
     Active Substance: CETUXIMAB
     Dosage: UNK
     Dates: start: 20220315, end: 20220422
  6. DISITAMAB VEDOTIN [Concomitant]
     Active Substance: DISITAMAB VEDOTIN
     Dosage: 120 MG, Q2WK
     Route: 041
     Dates: start: 20220507

REACTIONS (3)
  - Rectal adenocarcinoma [Recovering/Resolving]
  - Tumour marker increased [Recovering/Resolving]
  - Off label use [None]

NARRATIVE: CASE EVENT DATE: 20210112
